FAERS Safety Report 5377437-X (Version None)
Quarter: 2007Q3

REPORT INFORMATION
  Report Type: 
  Country: None (occurrence: None)
  Receive Date: 20070703
  Receipt Date: 20070628
  Transmission Date: 20080115
  Serious: Yes (Other)
  Sender: FDA-Public Use
  Company Number: D0053562A

PATIENT
  Age: 53 Year
  Sex: Female
  Weight: 53 kg

DRUGS (1)
  1. TAGONIS [Suspect]
     Indication: DEPRESSION
     Dosage: 20MG IN THE MORNING
     Route: 048
     Dates: start: 20040305, end: 20070504

REACTIONS (1)
  - SINUS BRADYCARDIA [None]
